FAERS Safety Report 22045275 (Version 9)
Quarter: 2024Q1

REPORT INFORMATION
  Report Type: Spontaneous
  Country: US (occurrence: US)
  Receive Date: 20230228
  Receipt Date: 20240308
  Transmission Date: 20240409
  Serious: Yes (Hospitalization, Other)
  Sender: FDA-Public Use
  Company Number: US-PFIZER INC-PV202300036428

PATIENT
  Age: 4 Year
  Sex: Male
  Weight: 16.3 kg

DRUGS (5)
  1. ELELYSO [Suspect]
     Active Substance: TALIGLUCERASE ALFA
     Indication: Gaucher^s disease
     Dosage: 800 IU, EVERY 2 WEEKS
     Route: 042
     Dates: start: 20230217
  2. ELELYSO [Suspect]
     Active Substance: TALIGLUCERASE ALFA
     Dosage: 800 IU EVERY 14 DAYS
     Route: 042
  3. PREDNISOLONE [Concomitant]
     Active Substance: PREDNISOLONE
     Dosage: UNK
  4. PREDNISOLONE [Concomitant]
     Active Substance: PREDNISOLONE
     Dosage: 3.25 ML
     Dates: start: 202305
  5. SODIUM CHLORIDE [Concomitant]
     Active Substance: SODIUM CHLORIDE
     Dosage: UNK

REACTIONS (15)
  - Angioedema [Recovering/Resolving]
  - Pain [Recovering/Resolving]
  - Pain in extremity [Recovered/Resolved]
  - Back pain [Recovered/Resolved]
  - Neoplasm malignant [Unknown]
  - Anaphylactic reaction [Unknown]
  - Generalised oedema [Unknown]
  - Face oedema [Unknown]
  - C-reactive protein increased [Unknown]
  - Back pain [Unknown]
  - Swelling [Unknown]
  - Skin mass [Unknown]
  - Peripheral swelling [Unknown]
  - Influenza [Unknown]
  - Weight increased [Unknown]

NARRATIVE: CASE EVENT DATE: 20240109
